FAERS Safety Report 17205668 (Version 1)
Quarter: 2019Q4

REPORT INFORMATION
  Report Type: Spontaneous
  Country: US (occurrence: US)
  Receive Date: 20191204
  Receipt Date: 20191204
  Transmission Date: 20200122
  Serious: Yes (Death)
  Sender: FDA-Public Use
  Company Number: None

PATIENT
  Age: 66 Year
  Sex: Female

DRUGS (17)
  1. HYDROXYCHLOROQUINE [Concomitant]
     Active Substance: HYDROXYCHLOROQUINE
  2. PREDNISONE. [Concomitant]
     Active Substance: PREDNISONE
  3. HYOSCYAMINE. [Concomitant]
     Active Substance: HYOSCYAMINE
  4. POTASSIUM CHLORIDE. [Concomitant]
     Active Substance: POTASSIUM CHLORIDE
  5. RESTASIS [Concomitant]
     Active Substance: CYCLOSPORINE
  6. AMBRISENTAN 10MG TABLETS 30/BO: 10MG [Suspect]
     Active Substance: AMBRISENTAN
     Indication: PULMONARY ARTERIAL HYPERTENSION
     Route: 048
     Dates: start: 201007, end: 201909
  7. SUMATRIPTAN. [Concomitant]
     Active Substance: SUMATRIPTAN
  8. LACTULOSE. [Concomitant]
     Active Substance: LACTULOSE
  9. REMODULIN [Concomitant]
     Active Substance: TREPROSTINIL
  10. OXYGEN. [Concomitant]
     Active Substance: OXYGEN
  11. LORAZEPAM. [Concomitant]
     Active Substance: LORAZEPAM
  12. SILDENAFIL. [Concomitant]
     Active Substance: SILDENAFIL
  13. FUROSEMIDE. [Concomitant]
     Active Substance: FUROSEMIDE
  14. METHADONE [Concomitant]
     Active Substance: METHADONE HYDROCHLORIDE
  15. PREGABALIN. [Concomitant]
     Active Substance: PREGABALIN
  16. HYDROMORPHONE [Concomitant]
     Active Substance: HYDROMORPHONE
  17. SENNA [Concomitant]
     Active Substance: SENNA LEAF\SENNOSIDES\SENNOSIDES A AND B

REACTIONS (3)
  - Hypoxia [None]
  - Interstitial lung disease [None]
  - Respiratory failure [None]

NARRATIVE: CASE EVENT DATE: 20190928
